FAERS Safety Report 22135715 (Version 1)
Quarter: 2023Q1

REPORT INFORMATION
  Report Type: Other
  Country: IN (occurrence: IN)
  Receive Date: 20230324
  Receipt Date: 20230324
  Transmission Date: 20230418
  Serious: Yes (Hospitalization, Other)
  Sender: FDA-Public Use
  Company Number: IN-Aprecia Pharmaceuticals-APRE20230077

PATIENT
  Sex: Male

DRUGS (4)
  1. LEVETIRACETAM [Suspect]
     Active Substance: LEVETIRACETAM
     Indication: Seizure
     Dosage: 500 MG
     Route: 065
  2. LEVETIRACETAM [Suspect]
     Active Substance: LEVETIRACETAM
     Dosage: 1500 MG
     Route: 065
  3. PHENYTOIN [Suspect]
     Active Substance: PHENYTOIN
     Indication: Seizure
     Dosage: 300 MG
     Route: 065
  4. CLOBAZAM [Suspect]
     Active Substance: CLOBAZAM
     Indication: Seizure
     Dosage: 5 MG
     Route: 065

REACTIONS (16)
  - Tubulointerstitial nephritis [Recovering/Resolving]
  - Respiratory distress [Recovering/Resolving]
  - Acute kidney injury [Recovering/Resolving]
  - Pyrexia [Recovering/Resolving]
  - Cough [Recovering/Resolving]
  - Sputum discoloured [Recovering/Resolving]
  - Dyspnoea [Recovering/Resolving]
  - Dyspnoea exertional [Recovering/Resolving]
  - Asthenia [Recovering/Resolving]
  - Urine output decreased [Recovering/Resolving]
  - Orthopnoea [Recovering/Resolving]
  - Dyspnoea paroxysmal nocturnal [Recovering/Resolving]
  - Eosinophilia [Recovering/Resolving]
  - Pulmonary oedema [Recovering/Resolving]
  - Hypervolaemia [Recovering/Resolving]
  - Metabolic acidosis [Recovering/Resolving]
